FAERS Safety Report 8232172-5 (Version None)
Quarter: 2012Q1

REPORT INFORMATION
  Report Type: 
  Country: None (occurrence: None)
  Receive Date: 20120323
  Receipt Date: 20120320
  Transmission Date: 20120608
  Serious: Yes (Hospitalization)
  Sender: FDA-Public Use
  Company Number: HU-B.I. PHARMACEUTICALS,INC./RIDGEFIELD-2012-AP-00208AP

PATIENT
  Sex: Male
  Weight: 103 kg

DRUGS (13)
  1. VENTOLIN [Concomitant]
     Indication: CHRONIC OBSTRUCTIVE PULMONARY DISEASE
     Dosage: FORMULATION: EVOLHALER, DAILY DOSE: PRN
     Dates: start: 19990101
  2. AMLODIPIN SANDOZ [Concomitant]
     Indication: HYPERTENSION
     Dosage: 5 MG
     Dates: start: 20111101
  3. CITROKALCIUM [Concomitant]
     Indication: OSTEOPOROSIS
     Dosage: 500 MG
     Dates: start: 20080101
  4. CYMBALTA [Concomitant]
     Indication: DEPRESSION
     Dosage: 30 MG
     Dates: start: 20110601
  5. APO FAMOTIDIN [Concomitant]
     Indication: HYPERTENSION
     Dosage: 20 MG
     Dates: start: 20110101
  6. VITAMIN ALPHA D3 [Concomitant]
     Indication: OSTEOPOROSIS
     Dosage: 3000 U
  7. ASPIRIN [Concomitant]
     Indication: CEREBRAL ISCHAEMIA
     Dosage: 100 MG
     Dates: start: 20110601
  8. SPIRIVA RESPIMAT [Suspect]
     Indication: CHRONIC OBSTRUCTIVE PULMONARY DISEASE
     Dosage: 5 MCG
     Route: 055
     Dates: start: 19990101
  9. FLUTICASONE PROPIONATE/SALMETEROL [Concomitant]
     Indication: CHRONIC OBSTRUCTIVE PULMONARY DISEASE
     Dosage: 1000 MCG
     Dates: start: 19990101
  10. COVEREX-AS [Concomitant]
     Indication: HYPERTENSION
     Dosage: 5 MG
     Dates: start: 20110101
  11. ALGOZONE [Concomitant]
     Indication: OSTEOPOROSIS
     Dosage: PRN
     Dates: start: 20110101
  12. DOXAZOSIN MESYLATE [Concomitant]
     Indication: HYPERTENSION
     Dosage: 4 MG
     Dates: start: 20111102
  13. NEBISPES / NEBIROLOL [Concomitant]
     Indication: HYPERTENSION
     Dosage: 5 MG
     Dates: start: 20110801

REACTIONS (1)
  - VIRAL DIARRHOEA [None]
